FAERS Safety Report 8849667 (Version 1)
Quarter: 2012Q4

REPORT INFORMATION
  Report Type: 
  Country: CN (occurrence: CN)
  Receive Date: 20121019
  Receipt Date: 20121019
  Transmission Date: 20130627
  Serious: Yes (Other)
  Sender: FDA-Public Use
  Company Number: CN-PFIZER INC-2012259227

PATIENT
  Age: 59 Year
  Sex: Female

DRUGS (2)
  1. CORDARONE [Suspect]
     Indication: ATRIAL FIBRILLATION
     Dosage: 0.2 g thrice daily
     Route: 048
     Dates: start: 20110721, end: 20110726
  2. CORDARONE [Suspect]
     Dosage: 0.2 g once daily
     Route: 048
     Dates: start: 20110726, end: 20110802

REACTIONS (6)
  - Fall [Unknown]
  - Asthenia [Unknown]
  - Tremor [Unknown]
  - Hunger [Unknown]
  - Erectile dysfunction [Unknown]
  - Thyroxine free increased [Recovering/Resolving]
